FAERS Safety Report 8608849-6 (Version None)
Quarter: 2012Q3

REPORT INFORMATION
  Report Type: 
  Country: None (occurrence: None)
  Receive Date: 20120821
  Receipt Date: 20120814
  Transmission Date: 20120928
  Serious: Yes (Other)
  Sender: FDA-Public Use
  Company Number: US-TEVA-354068USA

PATIENT
  Sex: Female

DRUGS (4)
  1. XANAX [Concomitant]
     Dosage: 1 MILLIGRAM DAILY;
     Route: 048
     Dates: start: 20120811
  2. NUVIGIL [Suspect]
     Indication: SLEEP APNOEA SYNDROME
     Dosage: EVERY AM
     Route: 048
     Dates: start: 20120801
  3. SERTRALINE HYDROCHLORIDE [Concomitant]
     Dosage: TWICE A DAY
     Route: 048
  4. NUVIGIL [Suspect]
     Indication: NARCOLEPSY

REACTIONS (2)
  - URTICARIA [None]
  - RASH [None]
